FAERS Safety Report 9906104 (Version 2)
Quarter: 2014Q1

REPORT INFORMATION
  Report Type: Spontaneous
  Country: US (occurrence: US)
  Receive Date: 20140218
  Receipt Date: 20140218
  Transmission Date: 20141002
  Serious: No
  Sender: FDA-Public Use
  Company Number: US-GILEAD-2012-0052995

PATIENT
  Age: 19 Year
  Sex: Male

DRUGS (3)
  1. LETAIRIS [Suspect]
     Indication: PULMONARY HYPERTENSION
     Dosage: 5 MG, UNK
     Route: 048
     Dates: start: 20100524
  2. ADCIRCA [Concomitant]
  3. REMODULIN [Suspect]

REACTIONS (3)
  - Somnolence [Unknown]
  - Unevaluable event [Unknown]
  - Skin hypertrophy [Unknown]
